FAERS Safety Report 24993673 (Version 1)
Quarter: 2025Q1

REPORT INFORMATION
  Report Type: Spontaneous
  Country: CA (occurrence: CA)
  Receive Date: 20250221
  Receipt Date: 20250221
  Transmission Date: 20250409
  Serious: Yes (Other)
  Sender: Haleon PLC
  Company Number: CA-HALEON-2229338

PATIENT
  Age: 68 Year
  Sex: Female

DRUGS (3)
  1. ADVIL [Suspect]
     Active Substance: IBUPROFEN
     Indication: Back pain
     Route: 048
  2. TYLENOL [Concomitant]
     Active Substance: ACETAMINOPHEN
     Indication: Product used for unknown indication
  3. VALACYCLOVIR [Concomitant]
     Active Substance: VALACYCLOVIR HYDROCHLORIDE
     Indication: Product used for unknown indication

REACTIONS (5)
  - Arrhythmia [Recovered/Resolved]
  - Discomfort [Recovered/Resolved]
  - Dyspnoea exertional [Recovered/Resolved]
  - Ocular discomfort [Recovered/Resolved]
  - Muscular weakness [Recovered/Resolved]
